FAERS Safety Report 12645723 (Version 2)
Quarter: 2016Q3

REPORT INFORMATION
  Report Type: Report from Study
  Country: US (occurrence: US)
  Receive Date: 20160811
  Receipt Date: 20160818
  Transmission Date: 20161109
  Serious: Yes (Other)
  Sender: FDA-Public Use
  Company Number: US-ACTELION-A-NJ2015-124085

PATIENT
  Age: 64 Year
  Sex: Female

DRUGS (3)
  1. SILDENAFIL. [Concomitant]
     Active Substance: SILDENAFIL
  2. OPSUMIT [Suspect]
     Active Substance: MACITENTAN
     Indication: PULMONARY ARTERIAL HYPERTENSION
     Dosage: 10 MG, QD
     Route: 048
     Dates: start: 20150819
  3. HYDROCODONE BITARTRATE AND ACETAMINOPHEN [Concomitant]
     Active Substance: ACETAMINOPHEN\HYDROCODONE BITARTRATE
     Dosage: 10/325 MG/Q8H

REACTIONS (26)
  - Frequent bowel movements [Unknown]
  - Anorectal discomfort [Unknown]
  - Dyspnoea exertional [Unknown]
  - Dizziness [Unknown]
  - Wheezing [Unknown]
  - Feeling hot [Unknown]
  - Anal pruritus [Unknown]
  - Fatigue [Unknown]
  - Spinal fusion surgery [Unknown]
  - Sinus disorder [Unknown]
  - Endodontic procedure [Unknown]
  - Sleep apnoea syndrome [Unknown]
  - Haemorrhoids [Unknown]
  - Back pain [Unknown]
  - Cervical cord compression [Unknown]
  - Intervertebral disc protrusion [Unknown]
  - Tendonitis [Unknown]
  - Tension [Unknown]
  - Drug administration error [Unknown]
  - Smoke sensitivity [Unknown]
  - Sensitivity to weather change [Unknown]
  - Glycosylated haemoglobin increased [Unknown]
  - Urticaria [Unknown]
  - Rectal haemorrhage [Unknown]
  - Hypokinesia [Unknown]
  - Dyspnoea [Unknown]

NARRATIVE: CASE EVENT DATE: 20160801
